FAERS Safety Report 21997533 (Version 1)
Quarter: 2023Q1

REPORT INFORMATION
  Report Type: Spontaneous
  Country: BR (occurrence: BR)
  Receive Date: 20230216
  Receipt Date: 20230216
  Transmission Date: 20230417
  Serious: Yes (Other)
  Sender: FDA-Public Use
  Company Number: BR-MALLINCKRODT-T202301154

PATIENT
  Age: 59 Year
  Sex: Female
  Weight: 65 kg

DRUGS (1)
  1. AMITIZA [Suspect]
     Active Substance: LUBIPROSTONE
     Indication: Constipation
     Dosage: 24 MICROGRAM, Q12H
     Route: 048
     Dates: start: 20230201, end: 20230205

REACTIONS (8)
  - Epilepsy [Recovering/Resolving]
  - Hypokinesia [Recovering/Resolving]
  - Thinking abnormal [Recovering/Resolving]
  - Speech disorder [Recovering/Resolving]
  - Gait inability [Recovering/Resolving]
  - Constipation [Recovering/Resolving]
  - Heart rate increased [Recovering/Resolving]
  - Dyspnoea [Recovering/Resolving]

NARRATIVE: CASE EVENT DATE: 20230205
